FAERS Safety Report 11661076 (Version 1)
Quarter: 2015Q4

REPORT INFORMATION
  Report Type: Spontaneous
  Country: DE (occurrence: DE)
  Receive Date: 20151026
  Receipt Date: 20151026
  Transmission Date: 20160304
  Serious: Yes (Other)
  Sender: FDA-Public Use
  Company Number: GXKR2015DE004817

PATIENT

DRUGS (5)
  1. AZATHIOPRINE. [Concomitant]
     Active Substance: AZATHIOPRINE
     Indication: COLITIS ULCERATIVE
     Dosage: 150 [MG/D ], 0.-37.2 GW
     Route: 048
     Dates: start: 20141003, end: 20150621
  2. IRON FERROUS [Concomitant]
     Indication: IRON DEFICIENCY
     Route: 041
     Dates: start: 20150415, end: 20150415
  3. FOLSAEURE [Concomitant]
     Active Substance: FOLIC ACID
     Indication: PROPHYLAXIS OF NEURAL TUBE DEFECT
     Route: 048
     Dates: start: 20141003, end: 20150504
  4. AMOXICILLIN. [Concomitant]
     Active Substance: AMOXICILLIN
     Indication: SKIN INFECTION
     Dosage: UKN, GW. 12.2-13.5
     Route: 048
     Dates: start: 20141228, end: 20150107
  5. PREDNISOLONE. [Suspect]
     Active Substance: PREDNISOLONE
     Indication: COLITIS ULCERATIVE
     Dosage: 60 [MG/D (BIS 40 MG/D) ], GW 27.1 -29.1
     Route: 048
     Dates: start: 20150411, end: 20150425

REACTIONS (3)
  - Gestational diabetes [Recovered/Resolved]
  - Normal newborn [Unknown]
  - Exposure during pregnancy [Unknown]
